FAERS Safety Report 9682599 (Version 2)
Quarter: 2014Q2

REPORT INFORMATION
  Report Type: Spontaneous
  Country: JP (occurrence: JP)
  Receive Date: 20131112
  Receipt Date: 20140410
  Transmission Date: 20141212
  Serious: Yes (Hospitalization)
  Sender: FDA-Public Use
  Company Number: JP-UCBSA-102470

PATIENT
  Age: 76 Year
  Sex: Female

DRUGS (2)
  1. NEUPRO [Suspect]
     Indication: PARKINSON^S DISEASE
     Dosage: UNKNOWN DOSE
     Route: 061
     Dates: start: 2013
  2. FP [Suspect]
     Dosage: UNKNOWN DOSE
     Route: 048

REACTIONS (3)
  - Blood pressure fluctuation [Unknown]
  - Catecholamines urine [Unknown]
  - Norepinephrine increased [Unknown]
